FAERS Safety Report 24716023 (Version 1)
Quarter: 2024Q4

REPORT INFORMATION
  Report Type: Spontaneous
  Country: CN (occurrence: CN)
  Receive Date: 20241210
  Receipt Date: 20241210
  Transmission Date: 20250114
  Serious: Yes (Hospitalization, Other)
  Sender: BAXTER
  Company Number: None

PATIENT
  Age: 56 Year
  Sex: Female
  Weight: 76 kg

DRUGS (6)
  1. CYCLOPHOSPHAMIDE [Suspect]
     Active Substance: CYCLOPHOSPHAMIDE
     Indication: Breast cancer
     Dosage: 1.1 G, ONE TIME IN ONE DAY, DILUTED WITH 500 ML OF SODIUM CHLORIDE (NS)
     Route: 041
     Dates: start: 20241123, end: 20241123
  2. CYCLOPHOSPHAMIDE [Suspect]
     Active Substance: CYCLOPHOSPHAMIDE
     Indication: Chemotherapy
  3. SODIUM CHLORIDE [Suspect]
     Active Substance: SODIUM CHLORIDE
     Indication: Medication dilution
     Dosage: 500 ML, ONE TIME IN ONE DAY, USED TO DILUTE CYCLOPHOSPHAMIDE 1.1 G
     Route: 041
     Dates: start: 20241123, end: 20241123
  4. SODIUM CHLORIDE [Suspect]
     Active Substance: SODIUM CHLORIDE
     Dosage: 250 ML, ONE TIME IN ONE DAY, USED TO DILUTE EPIRUBICIN HYDROCHLORIDE 170 MG
     Route: 041
     Dates: start: 20241123, end: 20241123
  5. EPIRUBICIN HYDROCHLORIDE [Suspect]
     Active Substance: EPIRUBICIN HYDROCHLORIDE
     Indication: Breast cancer
     Dosage: 170 MG, ONE TIME IN ONE DAY, DILUTED WITH 100 ML OF SODIUM CHLORIDE (NS)
     Route: 041
     Dates: start: 20241123, end: 20241123
  6. EPIRUBICIN HYDROCHLORIDE [Suspect]
     Active Substance: EPIRUBICIN HYDROCHLORIDE
     Indication: Chemotherapy

REACTIONS (1)
  - Febrile neutropenia [Recovering/Resolving]

NARRATIVE: CASE EVENT DATE: 20241201
